FAERS Safety Report 10371318 (Version 4)
Quarter: 2014Q4

REPORT INFORMATION
  Report Type: Report from Study
  Country: US (occurrence: US)
  Receive Date: 20140808
  Receipt Date: 20141224
  Transmission Date: 20150528
  Serious: Yes (Hospitalization, Other)
  Sender: FDA-Public Use
  Company Number: US-SA-2014SA104188

PATIENT
  Age: 61 Year
  Sex: Female

DRUGS (4)
  1. LANTUS [Suspect]
     Active Substance: INSULIN GLARGINE
     Indication: DIABETES MELLITUS
     Dosage: DOSE:40 UNIT(S)
     Route: 065
     Dates: end: 201407
  2. HUMALOG [Concomitant]
     Active Substance: INSULIN LISPRO
  3. VIREAD [Concomitant]
     Active Substance: TENOFOVIR DISOPROXIL FUMARATE
  4. LANTUS [Suspect]
     Active Substance: INSULIN GLARGINE
     Indication: DIABETES MELLITUS
     Dosage: DOSE:40 UNIT(S)
     Route: 065
     Dates: start: 2014

REACTIONS (12)
  - Hepatic steatosis [Unknown]
  - Gastritis [Unknown]
  - Hypothyroidism [Unknown]
  - Cholelithiasis [Unknown]
  - Anaemia [Unknown]
  - Drug administration error [Unknown]
  - Gastric cancer [Unknown]
  - Pancreatitis [Unknown]
  - Blood glucose increased [Unknown]
  - Liver disorder [Unknown]
  - Weight decreased [Unknown]
  - Hepatitis C [Unknown]

NARRATIVE: CASE EVENT DATE: 20140718
